FAERS Safety Report 19799642 (Version 1)
Quarter: 2021Q3

REPORT INFORMATION
  Report Type: Report from Study
  Country: FR (occurrence: FR)
  Receive Date: 20210907
  Receipt Date: 20210907
  Transmission Date: 20211014
  Serious: Yes (Death)
  Sender: FDA-Public Use
  Company Number: FR-PFIZER INC-2017002756

PATIENT

DRUGS (11)
  1. OXALIPLATIN. [Suspect]
     Active Substance: OXALIPLATIN
     Indication: GERM CELL NEOPLASM
     Dosage: 130 MG/M2, CYCLIC (OVER 3 H ON DAY 10)
     Route: 042
  2. BLEOMYCIN [Suspect]
     Active Substance: BLEOMYCIN SULFATE
     Dosage: 25 IU, CYCLIC (DAILY ON DAYS 10?14)
     Route: 041
  3. GRANULOCYTE COLONY STIMULATING FACTOR [Concomitant]
     Active Substance: GRANULOCYTE COLONY-STIMULATING FACTOR NOS
     Dosage: 263 UG, CYCLIC (DAILY, DAYS 6?7, 9, 11?14, AND 16?20)
     Route: 058
  4. ETOPOSIDE. [Suspect]
     Active Substance: ETOPOSIDE
     Indication: GERM CELL NEOPLASM
     Dosage: 100 MG/M2, CYCLIC (PER DAY FOR 5 DAYS)
     Route: 042
  5. MESNA. [Suspect]
     Active Substance: MESNA
     Indication: GERM CELL NEOPLASM
     Dosage: 500 MG/M2, CYCLIC,  (AT 0, 3, 7 AND 11 H ON THE DAYS WHEN IFOSFAMIDE WAS GIVEN, INTRAVENOUS OR ORAL)
  6. CISPLATIN. [Suspect]
     Active Substance: CISPLATIN
     Dosage: 100 MG/M2, CYCLIC, (OVER 2 H ON DAY 1)
     Route: 042
  7. LENOGRASTIM [Concomitant]
     Active Substance: LENOGRASTIM
     Dosage: 263 UG, CYCLIC (DAILY ON DAYS 2?9 AND DAYS 16?20)
     Route: 058
  8. CISPLATIN. [Suspect]
     Active Substance: CISPLATIN
     Indication: GERM CELL NEOPLASM
     Dosage: 20 MG/M2, CYCLIC (PER DAY FOR 5 DAYS)
     Route: 042
  9. BLEOMYCIN [Suspect]
     Active Substance: BLEOMYCIN SULFATE
     Indication: GERM CELL NEOPLASM
     Dosage: 30 MG, CYCLIC (PER DAY ON DAYS 1, 8, AND 15)
     Route: 030
  10. PACLITAXEL. [Suspect]
     Active Substance: PACLITAXEL
     Indication: GERM CELL NEOPLASM
     Dosage: 175 MG/M2, CYCLIC, (OVER 3 H ON DAY 1)
     Route: 042
  11. IFOSFAMIDE. [Suspect]
     Active Substance: IFOSFAMIDE
     Indication: GERM CELL NEOPLASM
     Dosage: 2000 MG/M2, CYCLIC (OVER 3 H ON DAYS 10, 12, AND 14)
     Route: 042

REACTIONS (1)
  - Death [Fatal]
